FAERS Safety Report 6963950-8 (Version None)
Quarter: 2010Q3

REPORT INFORMATION
  Report Type: 
  Country: None (occurrence: None)
  Receive Date: 20100902
  Receipt Date: 20100825
  Transmission Date: 20110219
  Serious: Yes (Other)
  Sender: FDA-Public Use
  Company Number: US-AMGEN-KDL396941

PATIENT
  Sex: Male

DRUGS (5)
  1. NPLATE [Suspect]
     Indication: IDIOPATHIC THROMBOCYTOPENIC PURPURA
     Dates: start: 20081021, end: 20091030
  2. NPLATE [Suspect]
     Dates: start: 20100427
  3. CORTICOSTEROIDS [Concomitant]
     Dates: start: 20081004
  4. IMMU-G [Concomitant]
     Route: 042
     Dates: start: 20081008
  5. INTERFERON ALFA [Concomitant]
     Dates: start: 20081028

REACTIONS (4)
  - ANAEMIA [None]
  - BIOPSY BONE MARROW ABNORMAL [None]
  - THERAPEUTIC RESPONSE DECREASED [None]
  - THROMBOCYTOPENIA [None]
